FAERS Safety Report 4952612-4 (Version None)
Quarter: 2006Q1

REPORT INFORMATION
  Report Type: 
  Country: None (occurrence: None)
  Receive Date: 20060317
  Receipt Date: 20060313
  Transmission Date: 20060701
  Serious: Yes (Hospitalization, Disabling)
  Sender: FDA-Public Use
  Company Number: HQWYE320514MAR06

PATIENT
  Sex: Female

DRUGS (1)
  1. EFFEXOR XR [Suspect]
     Indication: DEPRESSION
     Dates: start: 20060216, end: 20060201

REACTIONS (9)
  - BLOOD PRESSURE INCREASED [None]
  - BODY TEMPERATURE INCREASED [None]
  - DYSARTHRIA [None]
  - FALL [None]
  - HEADACHE [None]
  - IMPAIRED WORK ABILITY [None]
  - MYDRIASIS [None]
  - SOMNOLENCE [None]
  - VISION BLURRED [None]
